FAERS Safety Report 9062341 (Version 12)
Quarter: 2017Q1

REPORT INFORMATION
  Report Type: Spontaneous
  Country: US (occurrence: US)
  Receive Date: 20130213
  Receipt Date: 20170306
  Transmission Date: 20170429
  Serious: Yes (Death, Hospitalization, Other)
  Sender: FDA-Public Use
  Company Number: US-GLAXOSMITHKLINE-A1007359A

PATIENT
  Age: 79 Year
  Sex: Female

DRUGS (15)
  1. FLOLAN [Suspect]
     Active Substance: EPOPROSTENOL SODIUM
     Dosage: 38 DF, CO
     Route: 042
  2. FLOLAN [Suspect]
     Active Substance: EPOPROSTENOL SODIUM
     Indication: PULMONARY ARTERIAL HYPERTENSION
     Dosage: UNK
  3. FLOLAN [Suspect]
     Active Substance: EPOPROSTENOL SODIUM
     Dosage: 38 DF, CO
     Route: 042
  4. FLOLAN [Suspect]
     Active Substance: EPOPROSTENOL SODIUM
     Dosage: 38 UNK, CO
     Route: 065
     Dates: start: 20060202
  5. COUMADIN [Concomitant]
     Active Substance: WARFARIN SODIUM
  6. FLOLAN [Suspect]
     Active Substance: EPOPROSTENOL SODIUM
     Dosage: UNK
  7. REVATIO [Concomitant]
     Active Substance: SILDENAFIL CITRATE
  8. WARFARIN [Concomitant]
     Active Substance: WARFARIN
  9. FLOLAN [Suspect]
     Active Substance: EPOPROSTENOL SODIUM
     Dosage: 38 NG/KG/MIN (CONCENTRATION 45,000, PUMP RATE 64 ML/DAY, VIAL STRENGTH 1.5 MG/ML), CO
  10. FLOLAN [Suspect]
     Active Substance: EPOPROSTENOL SODIUM
     Dosage: UNK, CO
     Route: 042
  11. FLOLAN [Suspect]
     Active Substance: EPOPROSTENOL SODIUM
     Dosage: UNK
     Dates: start: 20060203
  12. FLOLAN [Suspect]
     Active Substance: EPOPROSTENOL SODIUM
     Dosage: UNK
     Dates: start: 20060203
  13. FLOLAN [Suspect]
     Active Substance: EPOPROSTENOL SODIUM
     Indication: PULMONARY ARTERIAL HYPERTENSION
     Dosage: CONTINUOUS37 NG/KG/MIN CONTINOUSLYCONCENTRATION: 60,000 NG/MLVIAL STRENGTH 1.5 MG
     Route: 065
     Dates: start: 20060202
  14. FLOLAN [Suspect]
     Active Substance: EPOPROSTENOL SODIUM
     Dosage: UNK
     Dates: start: 20060203
  15. FLOLAN [Suspect]
     Active Substance: EPOPROSTENOL SODIUM
     Dosage: 38 NG/KG/MIN CONTINUOUS
     Route: 042
     Dates: start: 20060202

REACTIONS (17)
  - Death [Fatal]
  - Pallor [Recovering/Resolving]
  - Dyspnoea [Unknown]
  - Atrial fibrillation [Unknown]
  - Upper respiratory tract infection [Recovered/Resolved]
  - Malaise [Unknown]
  - Cardiac failure congestive [Unknown]
  - Pneumonia [Recovered/Resolved]
  - Cardiac failure [Unknown]
  - Diarrhoea [Recovering/Resolving]
  - Nausea [Recovering/Resolving]
  - Peripheral swelling [Unknown]
  - Condition aggravated [Unknown]
  - Hospitalisation [Unknown]
  - Cystitis [Unknown]
  - Drug dose omission [Unknown]
  - Neoplasm [Not Recovered/Not Resolved]

NARRATIVE: CASE EVENT DATE: 20150410
